FAERS Safety Report 23749231 (Version 1)
Quarter: 2024Q2

REPORT INFORMATION
  Report Type: Spontaneous
  Country: AT (occurrence: AT)
  Receive Date: 20240416
  Receipt Date: 20240416
  Transmission Date: 20240716
  Serious: Yes (Other)
  Sender: FDA-Public Use
  Company Number: AT-ABBVIE-5717226

PATIENT
  Age: 78 Year
  Sex: Female

DRUGS (1)
  1. RINVOQ [Suspect]
     Active Substance: UPADACITINIB
     Indication: Rheumatoid arthritis
     Route: 048

REACTIONS (6)
  - Bifascicular block [Unknown]
  - Low density lipoprotein increased [Unknown]
  - Rheumatoid arthritis [Recovered/Resolved]
  - Osteoporosis [Unknown]
  - Blood cholesterol increased [Unknown]
  - Syncope [Unknown]
